FAERS Safety Report 5517486-1 (Version None)
Quarter: 2007Q4

REPORT INFORMATION
  Report Type: 
  Country: None (occurrence: None)
  Receive Date: 20071114
  Receipt Date: 20071102
  Transmission Date: 20080405
  Serious: Yes (Other)
  Sender: FDA-Public Use
  Company Number: DE-PFIZER INC-2005047340

PATIENT
  Sex: Male
  Weight: 100 kg

DRUGS (11)
  1. LYRICA [Suspect]
     Indication: EPILEPSY
     Route: 048
     Dates: start: 20040901, end: 20050321
  2. CITALOPRAM HYDROBROMIDE [Suspect]
     Route: 048
  3. BLOPRESS [Concomitant]
     Route: 048
  4. CLONIDINE HCL [Concomitant]
     Route: 048
  5. METOPROLOL SUCCINATE [Concomitant]
     Route: 048
  6. ALL OTHER THERAPEUTIC PRODUCTS [Concomitant]
  7. TOPAMAX [Concomitant]
     Route: 048
  8. NEURONTIN [Concomitant]
     Route: 048
     Dates: start: 20030401, end: 20040930
  9. NEXIUM [Concomitant]
     Route: 048
  10. BACLOFEN [Concomitant]
     Route: 048
  11. CHLORHEXAMED [Concomitant]
     Dates: start: 20040101, end: 20040101

REACTIONS (9)
  - CONVULSION [None]
  - DYSPHAGIA [None]
  - ERYTHEMA [None]
  - HYPERAESTHESIA [None]
  - SKIN FISSURES [None]
  - TONGUE DISCOLOURATION [None]
  - TOOTH DECALCIFICATION [None]
  - TOOTH DISCOLOURATION [None]
  - TOOTH DISORDER [None]
